FAERS Safety Report 16445822 (Version 2)
Quarter: 2019Q3

REPORT INFORMATION
  Report Type: Spontaneous
  Country: JP (occurrence: JP)
  Receive Date: 20190618
  Receipt Date: 20190703
  Transmission Date: 20191004
  Serious: Yes (Death, Other)
  Sender: FDA-Public Use
  Company Number: JP-OTSUKA-JP-2011-10146

PATIENT
  Age: 74 Year
  Sex: Female
  Weight: 37 kg

DRUGS (9)
  1. THYRADIN S [Concomitant]
     Active Substance: LEVOTHYROXINE SODIUM
     Indication: HYPOTHYROIDISM
     Dosage: 75 ?G, QD
     Route: 048
     Dates: start: 20101214
  2. CETAPRIL [Concomitant]
     Active Substance: ALACEPRIL
     Indication: HYPERTENSION
     Dosage: 25 MG, QD
     Route: 048
     Dates: start: 20101214
  3. SAMSCA [Suspect]
     Active Substance: TOLVAPTAN
     Indication: OEDEMA PERIPHERAL
     Dosage: 15 MG, QD
     Route: 048
     Dates: start: 20110118, end: 20110123
  4. LASIX [Suspect]
     Active Substance: FUROSEMIDE
     Indication: OEDEMA PERIPHERAL
     Dosage: 40 MG, QD
     Route: 048
     Dates: start: 20101214, end: 20110123
  5. WARFARIN [Concomitant]
     Active Substance: WARFARIN
     Indication: THROMBOSIS PROPHYLAXIS
     Dosage: 0.5 MG, QD
     Route: 048
     Dates: start: 20101214
  6. GASTER [Concomitant]
     Active Substance: FAMOTIDINE
     Indication: GASTRITIS
     Dosage: 10 MG, QD
     Route: 048
     Dates: start: 20101214
  7. ALDACTONE A [Suspect]
     Active Substance: SPIRONOLACTONE
     Indication: OEDEMA PERIPHERAL
     Dosage: 25 MG, QD
     Route: 048
     Dates: start: 20101214, end: 20110124
  8. BAYASPIRIN [Concomitant]
     Active Substance: ASPIRIN
     Indication: ANGINA PECTORIS
     Dosage: 100 MG, QD
     Route: 048
     Dates: start: 20101214
  9. ANZIEF [Concomitant]
     Indication: BLOOD URIC ACID INCREASED
     Dosage: 50 MG, QD
     Route: 048
     Dates: start: 20101214

REACTIONS (7)
  - Hypoalbuminaemia [Fatal]
  - Gastrointestinal haemorrhage [Fatal]
  - Cardiac failure [Fatal]
  - Lung infection [Fatal]
  - Altered state of consciousness [Recovered/Resolved]
  - Hypernatraemia [Recovered/Resolved]
  - Pleural effusion [Fatal]

NARRATIVE: CASE EVENT DATE: 20110124
